FAERS Safety Report 22526954 (Version 1)
Quarter: 2023Q2

REPORT INFORMATION
  Report Type: Other
  Country: None (occurrence: US)
  Receive Date: 20230606
  Receipt Date: 20230606
  Transmission Date: 20230721
  Serious: Yes (Other)
  Sender: FDA-Public Use
  Company Number: US-VistaPharm, Inc.-2142395

PATIENT
  Age: 49 Year

DRUGS (2)
  1. MYCOPHENOLATE MOFETIL [Suspect]
     Active Substance: MYCOPHENOLATE MOFETIL
     Indication: Systemic lupus erythematosus
  2. DEVICE [Suspect]
     Active Substance: DEVICE

REACTIONS (2)
  - Low density lipoprotein increased [Recovered/Resolved]
  - Xanthoma [Recovered/Resolved]
